FAERS Safety Report 22228932 (Version 1)
Quarter: 2023Q2

REPORT INFORMATION
  Report Type: Spontaneous
  Country: US (occurrence: US)
  Receive Date: 20230419
  Receipt Date: 20230419
  Transmission Date: 20230721
  Serious: No
  Sender: FDA-Public Use
  Company Number: US-MSNLABS-2023MSNSPO00599

PATIENT

DRUGS (4)
  1. CAPECITABINE [Suspect]
     Active Substance: CAPECITABINE
     Indication: Gallbladder cancer
     Dosage: 03 TABLETS TWICE A DAY FOR 14 DAYS AND THEN OFF FOR 07 DAYS
     Route: 065
     Dates: start: 20230321, end: 20230327
  2. FUROSEMIDE [Concomitant]
     Active Substance: FUROSEMIDE
     Indication: Diabetes mellitus
     Route: 065
  3. LOSARTAN [Concomitant]
     Active Substance: LOSARTAN
     Indication: Product used for unknown indication
     Route: 065
  4. MIRALAX [Concomitant]
     Active Substance: POLYETHYLENE GLYCOL 3350
     Route: 065

REACTIONS (3)
  - Increased appetite [Unknown]
  - Dyspnoea [Unknown]
  - Hypoaesthesia [Unknown]

NARRATIVE: CASE EVENT DATE: 20230327
